FAERS Safety Report 24299052 (Version 1)
Quarter: 2024Q3

REPORT INFORMATION
  Report Type: Spontaneous
  Country: IE (occurrence: IE)
  Receive Date: 20240909
  Receipt Date: 20240909
  Transmission Date: 20241017
  Serious: Yes (Other)
  Sender: FRESENIUS KABI
  Company Number: None

PATIENT
  Age: 88 Year
  Sex: Female

DRUGS (1)
  1. PIPERACETAZINE\TAZOBACTAM [Suspect]
     Active Substance: PIPERACETAZINE\TAZOBACTAM
     Indication: Bacteraemia
     Dosage: FORM OF ADMIN-POWDER FOR SOLUTION FOR INFUSION?ROUTE OF ADMIN-INTRAVENOUS
     Dates: start: 20240701, end: 20240702

REACTIONS (3)
  - Wheezing [Recovered/Resolved]
  - Throat tightness [Recovered/Resolved]
  - Lip swelling [Recovered/Resolved]

NARRATIVE: CASE EVENT DATE: 20240702
